FAERS Safety Report 11422172 (Version 1)
Quarter: 2015Q3

REPORT INFORMATION
  Report Type: Spontaneous
  Country: US (occurrence: None)
  Receive Date: 20150826
  Receipt Date: 20150826
  Transmission Date: 20151125
  Serious: Yes (Hospitalization)
  Sender: FDA-Public Use
  Company Number: None

PATIENT
  Age: 47 Year
  Sex: Female

DRUGS (1)
  1. XELODA [Suspect]
     Active Substance: CAPECITABINE
     Indication: HEPATOBILIARY CANCER
     Dosage: 2 QAM, 3 QPM?SHIPPED TO PATIENT ON 7/29/2015
     Route: 048
     Dates: start: 20150729

REACTIONS (1)
  - Jaundice [None]

NARRATIVE: CASE EVENT DATE: 20150817
